FAERS Safety Report 15468867 (Version 1)
Quarter: 2018Q4

REPORT INFORMATION
  Report Type: Spontaneous
  Country: JP (occurrence: JP)
  Receive Date: 20181005
  Receipt Date: 20181005
  Transmission Date: 20190205
  Serious: Yes (Hospitalization, Other)
  Sender: FDA-Public Use
  Company Number: JP-GLAXOSMITHKLINE-JP2018JPN177960

PATIENT
  Sex: Female

DRUGS (2)
  1. ASMANEX [Concomitant]
     Active Substance: MOMETASONE FUROATE
     Dosage: UNK
  2. SULTANOL [Suspect]
     Active Substance: ALBUTEROL SULFATE
     Indication: BRONCHIOLITIS
     Dosage: UNK, BID(MORNING,NIGHT)
     Route: 055

REACTIONS (4)
  - Product use in unapproved indication [Unknown]
  - Drug ineffective for unapproved indication [Unknown]
  - Dermatosis [Unknown]
  - Inappropriate schedule of product administration [Unknown]
